FAERS Safety Report 16448776 (Version 2)
Quarter: 2019Q3

REPORT INFORMATION
  Report Type: Report from Study
  Country: US (occurrence: US)
  Receive Date: 20190619
  Receipt Date: 20190918
  Transmission Date: 20191004
  Serious: No
  Sender: FDA-Public Use
  Company Number: US-ALEXION PHARMACEUTICALS INC.-A201908920

PATIENT
  Sex: Female

DRUGS (1)
  1. STRENSIQ [Suspect]
     Active Substance: ASFOTASE ALFA
     Indication: PRODUCT USED FOR UNKNOWN INDICATION
     Dosage: UNK
     Route: 065

REACTIONS (6)
  - Tremor [Unknown]
  - Herpes zoster [Not Recovered/Not Resolved]
  - Facial pain [Not Recovered/Not Resolved]
  - Migraine [Unknown]
  - Eating disorder [Unknown]
  - Candida infection [Unknown]
